FAERS Safety Report 19932642 (Version 2)
Quarter: 2021Q4

REPORT INFORMATION
  Report Type: Report from Study
  Country: CL (occurrence: CL)
  Receive Date: 20211008
  Receipt Date: 20211102
  Transmission Date: 20220303
  Serious: Yes (Hospitalization, Other)
  Sender: FDA-Public Use
  Company Number: CL-BAYER-2021A221431

PATIENT
  Age: 52 Year
  Sex: Female

DRUGS (1)
  1. VENTAVIS [Suspect]
     Active Substance: ILOPROST
     Indication: Pulmonary hypertension
     Dosage: 1 ML, 6ID (EVERY 3 HOURS)
     Route: 065
     Dates: start: 20210303

REACTIONS (8)
  - Rhinovirus infection [Recovering/Resolving]
  - N-terminal prohormone brain natriuretic peptide increased [Recovered/Resolved]
  - Headache [Recovering/Resolving]
  - Depressed mood [Recovering/Resolving]
  - Drug tolerance decreased [Unknown]
  - Nausea [Recovered/Resolved]
  - Insomnia [Recovered/Resolved]
  - Weight decreased [Recovering/Resolving]

NARRATIVE: CASE EVENT DATE: 20210301
